FAERS Safety Report 18749401 (Version 1)
Quarter: 2021Q1

REPORT INFORMATION
  Report Type: Report from Study
  Country: CA (occurrence: CA)
  Receive Date: 20210116
  Receipt Date: 20210116
  Transmission Date: 20210419
  Serious: Yes (Other)
  Sender: FDA-Public Use
  Company Number: NVSC2020CA262899

PATIENT
  Age: 61 Year
  Sex: Male

DRUGS (1)
  1. MAYZENT [Suspect]
     Active Substance: SIPONIMOD
     Indication: SECONDARY PROGRESSIVE MULTIPLE SCLEROSIS
     Dosage: UNK
     Route: 048
     Dates: start: 20200911

REACTIONS (5)
  - Glaucoma [Unknown]
  - Nasopharyngitis [Unknown]
  - Pyrexia [Unknown]
  - Cataract [Unknown]
  - Astigmatism [Unknown]

NARRATIVE: CASE EVENT DATE: 2020
